FAERS Safety Report 24395620 (Version 1)
Quarter: 2024Q4

REPORT INFORMATION
  Report Type: Report from Study
  Country: JP (occurrence: JP)
  Receive Date: 20241004
  Receipt Date: 20241004
  Transmission Date: 20250114
  Serious: Yes (Hospitalization)
  Sender: GLAXOSMITHKLINE
  Company Number: JP-GLAXOSMITHKLINE-JP2023JPN070212

PATIENT

DRUGS (27)
  1. MEPOLIZUMAB [Suspect]
     Active Substance: MEPOLIZUMAB
     Indication: Eosinophilic granulomatosis with polyangiitis
     Dosage: 300 MG, Q4W
     Dates: start: 20180831, end: 20180928
  2. MEPOLIZUMAB [Suspect]
     Active Substance: MEPOLIZUMAB
     Dosage: 300 MG
     Dates: start: 20181217, end: 20181217
  3. MEPOLIZUMAB [Suspect]
     Active Substance: MEPOLIZUMAB
     Dosage: 300 MG, Q4W
     Dates: start: 20190121, end: 20190218
  4. MEPOLIZUMAB [Suspect]
     Active Substance: MEPOLIZUMAB
     Dosage: 300 MG, Q8W
     Dates: start: 20190418, end: 20190418
  5. MEPOLIZUMAB [Suspect]
     Active Substance: MEPOLIZUMAB
     Dosage: 300 MG, Q4W
     Dates: start: 20190516, end: 20190516
  6. MEPOLIZUMAB [Suspect]
     Active Substance: MEPOLIZUMAB
     Dosage: 300 MG, Q8W
     Dates: start: 20190711, end: 20190711
  7. MEPOLIZUMAB [Suspect]
     Active Substance: MEPOLIZUMAB
     Dosage: 300 MG, Q4W
     Dates: start: 20190815, end: 20191114
  8. MEPOLIZUMAB [Suspect]
     Active Substance: MEPOLIZUMAB
     Dosage: 300 MG, Q6W
     Dates: start: 20191223, end: 20191223
  9. MEPOLIZUMAB [Suspect]
     Active Substance: MEPOLIZUMAB
     Dosage: 300 MG, Q4W
     Dates: start: 20200123, end: 20200326
  10. MEPOLIZUMAB [Suspect]
     Active Substance: MEPOLIZUMAB
     Dosage: 300 MG, Q5W
     Dates: start: 20200501, end: 20200501
  11. MEPOLIZUMAB [Suspect]
     Active Substance: MEPOLIZUMAB
     Dosage: 300 MG, Q6W
     Dates: start: 20200612
  12. PREDNISOLONE [Concomitant]
     Active Substance: PREDNISOLONE
     Indication: Eosinophilic granulomatosis with polyangiitis
     Dosage: 4 MG, QD
     Route: 048
     Dates: end: 20190217
  13. PREDNISOLONE [Concomitant]
     Active Substance: PREDNISOLONE
     Dosage: 3 MG, QD
     Dates: start: 20190218, end: 20190515
  14. PREDNISOLONE [Concomitant]
     Active Substance: PREDNISOLONE
     Dosage: 2 MG, QD
     Dates: start: 20190516
  15. PREDNISOLONE [Concomitant]
     Active Substance: PREDNISOLONE
     Dosage: 1 MG, QD
     Dates: start: 20191017, end: 20200325
  16. FLUTIFORM [Concomitant]
     Active Substance: FLUTIFORM
     Dosage: 250 ?G, QD
     Route: 055
  17. TRICHLORMETHIAZIDE [Concomitant]
     Active Substance: TRICHLORMETHIAZIDE
     Dosage: UNK
  18. LANSOPRAZOLE [Concomitant]
     Active Substance: LANSOPRAZOLE
     Indication: Gastritis prophylaxis
     Dosage: UNK
  19. RALOXIFENE HYDROCHLORIDE [Concomitant]
     Active Substance: RALOXIFENE HYDROCHLORIDE
     Dosage: UNK
  20. AMLODIPINE [Concomitant]
     Active Substance: AMLODIPINE BESYLATE
     Dosage: UNK
  21. JANUVIA [Concomitant]
     Active Substance: SITAGLIPTIN PHOSPHATE
     Dosage: UNK
  22. TELMISARTAN [Concomitant]
     Active Substance: TELMISARTAN
     Dosage: UNK
  23. FUDOSTEINE [Concomitant]
     Active Substance: FUDOSTEINE
     Dosage: UNK
  24. THEOPHYLLINE [Concomitant]
     Active Substance: THEOPHYLLINE
     Dosage: UNK
  25. PROCATEROL HYDROCHLORIDE [Concomitant]
     Active Substance: PROCATEROL HYDROCHLORIDE
     Dosage: UNK
  26. SODIUM FERROUS CITRATE [Concomitant]
     Active Substance: SODIUM FERROUS CITRATE
     Indication: Anaemia
     Dosage: UNK
  27. MAGNESIUM OXIDE [Concomitant]
     Active Substance: MAGNESIUM OXIDE
     Indication: Constipation
     Dosage: UNK

REACTIONS (11)
  - Gait disturbance [Recovering/Resolving]
  - Decreased appetite [Recovering/Resolving]
  - Headache [Recovering/Resolving]
  - Decreased appetite [Recovered/Resolved]
  - Gastrooesophageal reflux disease [Recovering/Resolving]
  - Hiatus hernia [Recovering/Resolving]
  - Urinary tract infection [Recovering/Resolving]
  - Depression [Recovered/Resolved]
  - Eczema [Recovering/Resolving]
  - Inappropriate schedule of product administration [Unknown]
  - Off label use [Unknown]

NARRATIVE: CASE EVENT DATE: 20181001
